FAERS Safety Report 9823278 (Version 1)
Quarter: 2014Q1

REPORT INFORMATION
  Report Type: Spontaneous
  Country: US (occurrence: US)
  Receive Date: 20140116
  Receipt Date: 20140116
  Transmission Date: 20141002
  Serious: Yes (Death)
  Sender: FDA-Public Use
  Company Number: US-NAPPMUNDI-USA-2013-0109817

PATIENT
  Sex: Female

DRUGS (1)
  1. DILAUDID - HP INJECTION [Suspect]
     Indication: DRUG ABUSE
     Route: 042

REACTIONS (1)
  - Drug abuse [Fatal]
